FAERS Safety Report 18948084 (Version 1)
Quarter: 2021Q1

REPORT INFORMATION
  Report Type: Spontaneous
  Country: BR (occurrence: BR)
  Receive Date: 20210226
  Receipt Date: 20210226
  Transmission Date: 20210420
  Serious: Yes (Death)
  Sender: FDA-Public Use
  Company Number: BR-FRESENIUS KABI-FK202101878

PATIENT
  Age: 86 Year
  Sex: Male

DRUGS (4)
  1. HYDROCORTISONE SODIUM SUCCINATE 100 MG [Suspect]
     Active Substance: HYDROCORTISONE SODIUM SUCCINATE
     Indication: COVID-19
     Route: 065
  2. OSELTAMIVIR [Suspect]
     Active Substance: OSELTAMIVIR
     Indication: COVID-19
     Route: 065
  3. AZITHROMYCIN (MANUFACTURER UNKNOWN) [Suspect]
     Active Substance: AZITHROMYCIN ANHYDROUS
     Indication: COVID-19
     Route: 065
  4. CEFTRIAXONE FOR INJECTION (MANUFACTURER UNKNOWN) [Suspect]
     Active Substance: CEFTRIAXONE
     Indication: COVID-19
     Route: 065

REACTIONS (1)
  - Gastrointestinal mucormycosis [Fatal]
